FAERS Safety Report 9895939 (Version 2)
Quarter: 2014Q1

REPORT INFORMATION
  Report Type: Spontaneous
  Country: US (occurrence: US)
  Receive Date: 20140213
  Receipt Date: 20140213
  Transmission Date: 20141002
  Serious: No
  Sender: FDA-Public Use
  Company Number: US-BRISTOL-MYERS SQUIBB COMPANY-17399965

PATIENT
  Age: 81 Year
  Sex: Female
  Weight: 47.62 kg

DRUGS (6)
  1. ORENCIA [Suspect]
     Indication: RHEUMATOID ARTHRITIS
     Route: 058
     Dates: start: 201207, end: 201211
  2. PREDNISONE [Concomitant]
  3. OXYCODONE [Concomitant]
  4. METHOTREXATE [Concomitant]
  5. HUMIRA [Concomitant]
  6. DURAGESIC [Concomitant]

REACTIONS (4)
  - Impaired healing [Unknown]
  - Bunion [Unknown]
  - Clostridium difficile infection [Unknown]
  - Bronchitis [Unknown]
